FAERS Safety Report 7241159-0 (Version None)
Quarter: 2011Q1

REPORT INFORMATION
  Report Type: 
  Country: None (occurrence: None)
  Receive Date: 20110120
  Receipt Date: 20110120
  Transmission Date: 20110831
  Serious: No
  Sender: FDA-Public Use
  Company Number: None

PATIENT
  Age: 74 Year
  Sex: Female
  Weight: 52.1637 kg

DRUGS (2)
  1. LEVOTHROID FOSTER MFG [Suspect]
     Indication: BLOOD THYROID STIMULATING HORMONE DECREASED
     Dosage: 0.088 MG 1 DAILY
     Dates: start: 20101101
  2. LEVOTHROID FOSTER MFG [Suspect]
     Indication: BLOOD THYROID STIMULATING HORMONE DECREASED
     Dosage: 0.088 MG 1 DAILY
     Dates: start: 20100601

REACTIONS (1)
  - MUSCULAR WEAKNESS [None]
